FAERS Safety Report 4941886-1 (Version None)
Quarter: 2006Q1

REPORT INFORMATION
  Report Type: 
  Country: None (occurrence: None)
  Receive Date: 20060308
  Receipt Date: 20060227
  Transmission Date: 20060701
  Serious: Yes (Hospitalization)
  Sender: FDA-Public Use
  Company Number: 200512972BWH

PATIENT
  Age: 43 Year
  Sex: Female
  Weight: 81.6475 kg

DRUGS (8)
  1. AVELOX [Suspect]
     Indication: SINUSITIS
     Dosage: 400 MG, ONCE, ORAL
     Route: 048
     Dates: start: 20031227
  2. PREDNISONE [Suspect]
  3. ALLEGRA [Concomitant]
  4. SINGULAIR [Concomitant]
  5. ESTROGEN [Concomitant]
  6. ADVAIR DISKUS 100/50 [Concomitant]
  7. ALBUTEROL [Concomitant]
  8. NASONEX [Concomitant]

REACTIONS (32)
  - AGITATION [None]
  - AMNESIA [None]
  - ANAPHYLACTIC REACTION [None]
  - ANXIETY [None]
  - ARTHRALGIA [None]
  - ASTHENIA [None]
  - BACK PAIN [None]
  - BLOOD GLUCOSE INCREASED [None]
  - BLOOD POTASSIUM DECREASED [None]
  - CONSTIPATION [None]
  - COUGH [None]
  - CYANOSIS [None]
  - DILATATION ATRIAL [None]
  - DRY MOUTH [None]
  - ELECTROCARDIOGRAM QT PROLONGED [None]
  - ELECTROCARDIOGRAM T WAVE ABNORMAL [None]
  - ERYTHEMA [None]
  - FLATULENCE [None]
  - FLUSHING [None]
  - HYPERTENSION [None]
  - INSOMNIA [None]
  - PAIN [None]
  - PAIN IN EXTREMITY [None]
  - PARAESTHESIA [None]
  - RASH [None]
  - RESPIRATORY DISTRESS [None]
  - RHINITIS [None]
  - SINUSITIS [None]
  - SPEECH DISORDER [None]
  - STOMACH DISCOMFORT [None]
  - SUPERIOR VENA CAVAL OCCLUSION [None]
  - VERTIGO [None]
